FAERS Safety Report 5465565-X (Version None)
Quarter: 2007Q3

REPORT INFORMATION
  Report Type: 
  Country: None (occurrence: None)
  Receive Date: 20070924
  Receipt Date: 20070917
  Transmission Date: 20080115
  Serious: Yes (Hospitalization)
  Sender: FDA-Public Use
  Company Number: US-ASTRAZENECA-2007UW21901

PATIENT
  Age: 75 Year
  Sex: Male
  Weight: 90 kg

DRUGS (6)
  1. ARIMIDEX [Suspect]
     Indication: BLOOD TESTOSTERONE DECREASED
     Route: 048
     Dates: start: 20070801, end: 20070823
  2. ZOLADEX [Suspect]
     Indication: BLOOD TESTOSTERONE DECREASED
     Route: 058
     Dates: start: 20070801, end: 20070801
  3. ANDROGEL [Suspect]
     Indication: BLOOD TESTOSTERONE DECREASED
     Dates: start: 20070801, end: 20070823
  4. HYDROCHLOROTHIAZIDE [Concomitant]
     Dates: start: 20010101
  5. NORVASC [Concomitant]
     Dates: start: 20010101
  6. LEVOXYL [Concomitant]
     Dates: start: 19920101

REACTIONS (3)
  - ATRIAL FIBRILLATION [None]
  - ATRIAL FLUTTER [None]
  - OVERDOSE [None]
